FAERS Safety Report 8133890-X (Version None)
Quarter: 2012Q1

REPORT INFORMATION
  Report Type: 
  Country: None (occurrence: None)
  Receive Date: 20120213
  Receipt Date: 20120202
  Transmission Date: 20120608
  Serious: Yes (Other)
  Sender: FDA-Public Use
  Company Number: US-ELI_LILLY_AND_COMPANY-US201009000495

PATIENT
  Age: 53 Year
  Sex: Female

DRUGS (5)
  1. GABAPENTIN [Concomitant]
     Dosage: UNK, UNKNOWN
     Route: 065
  2. FORTEO [Suspect]
     Dosage: 20 UG, QD
     Route: 065
     Dates: end: 20101001
  3. PREDNISONE TAB [Concomitant]
     Indication: AUTOIMMUNE DISORDER
     Dosage: 5 MG, UNKNOWN
     Route: 065
     Dates: start: 19910101
  4. FORTEO [Suspect]
     Indication: OSTEOPOROSIS
     Dosage: 20 UG, QD
     Route: 065
     Dates: start: 20100801
  5. FORTEO [Suspect]
     Dosage: 20 UG, QD
     Route: 065

REACTIONS (13)
  - ABDOMINAL DISCOMFORT [None]
  - NAUSEA [None]
  - PATHOLOGICAL FRACTURE [None]
  - INJECTION SITE HAEMATOMA [None]
  - BEHCET'S SYNDROME [None]
  - MALAISE [None]
  - DIZZINESS [None]
  - SINUSITIS [None]
  - DIARRHOEA [None]
  - FREQUENT BOWEL MOVEMENTS [None]
  - ADVERSE EVENT [None]
  - INJECTION SITE ERYTHEMA [None]
  - INJECTION SITE PAIN [None]
